FAERS Safety Report 24608286 (Version 1)
Quarter: 2024Q4

REPORT INFORMATION
  Report Type: Spontaneous
  Country: CA (occurrence: CA)
  Receive Date: 20241112
  Receipt Date: 20241112
  Transmission Date: 20250114
  Serious: Yes (Other)
  Sender: PFIZER
  Company Number: CA-PFIZER INC-202400296725

PATIENT
  Age: 82 Year
  Sex: Male

DRUGS (8)
  1. OXALIPLATIN [Suspect]
     Active Substance: OXALIPLATIN
     Indication: Rectal cancer
     Dosage: 166 ML
     Route: 042
  2. OXALIPLATIN [Suspect]
     Active Substance: OXALIPLATIN
     Indication: Chemotherapy
  3. DEXAMETHASONE [Concomitant]
     Active Substance: DEXAMETHASONE
     Route: 065
  4. FAMOTIDINE [Concomitant]
     Active Substance: FAMOTIDINE
  5. FLUOROURACIL [Concomitant]
     Active Substance: FLUOROURACIL
  6. LEUCOVORIN [Concomitant]
     Active Substance: LEUCOVORIN\LEUCOVORIN CALCIUM
  7. METOCLOPRAMIDE [Concomitant]
     Active Substance: METOCLOPRAMIDE
  8. SENNA LEAF [Concomitant]
     Active Substance: SENNA LEAF

REACTIONS (10)
  - Abdominal pain [Unknown]
  - Asthenia [Unknown]
  - Flushing [Unknown]
  - Hyperhidrosis [Unknown]
  - Hypertension [Unknown]
  - Lip swelling [Unknown]
  - Nausea [Unknown]
  - Neuropathy peripheral [Unknown]
  - Speech disorder [Unknown]
  - Tongue disorder [Unknown]
